FAERS Safety Report 17247608 (Version 1)
Quarter: 2020Q1

REPORT INFORMATION
  Report Type: Spontaneous
  Country: US (occurrence: US)
  Receive Date: 20200107
  Receipt Date: 20200107
  Transmission Date: 20200409
  Serious: Yes (Other)
  Sender: FDA-Public Use
  Company Number: None

PATIENT
  Age: 59 Year
  Sex: Female
  Weight: 61.2 kg

DRUGS (11)
  1. CITRACAL [Concomitant]
     Active Substance: CALCIUM CITRATE
  2. MYCOPHENOLIC ACID. [Concomitant]
     Active Substance: MYCOPHENOLIC ACID
  3. FISH OIL [Concomitant]
     Active Substance: FISH OIL
  4. LANSOPREZOL [Concomitant]
  5. CENTRUM SILVER [Concomitant]
     Active Substance: MINERALS\VITAMINS
  6. PROGRAF [Concomitant]
     Active Substance: TACROLIMUS
  7. VALGANCYCLOVIR [Concomitant]
     Active Substance: VALGANCICLOVIR
  8. PROBIOTIC [Concomitant]
     Active Substance: PROBIOTICS NOS
  9. ATOVAQONE ORAL SUSPENSION USP [Suspect]
     Active Substance: ATOVAQUONE
     Indication: INFECTION PROPHYLAXIS
     Dosage: ?          QUANTITY:10 ML;?
     Route: 048
     Dates: start: 20191222
  10. PREDNISOLONE. [Concomitant]
     Active Substance: PREDNISOLONE
  11. AZITHROMYCIN ANHYDROUS. [Concomitant]
     Active Substance: AZITHROMYCIN ANHYDROUS

REACTIONS (4)
  - Burning sensation [None]
  - Tongue discomfort [None]
  - Product substitution issue [None]
  - Gastrooesophageal reflux disease [None]
